FAERS Safety Report 4598916-9 (Version None)
Quarter: 2005Q1

REPORT INFORMATION
  Report Type: 
  Country: None (occurrence: None)
  Receive Date: 20050304
  Receipt Date: 20050224
  Transmission Date: 20050727
  Serious: Yes (Other)
  Sender: FDA-Public Use
  Company Number: BR-ABBOTT-05P-020-0292493-00

PATIENT
  Age: 51 Year
  Sex: Female
  Weight: 69 kg

DRUGS (2)
  1. SYNTHROID [Suspect]
     Indication: HYPOTHYROIDISM
     Route: 048
     Dates: start: 20050101, end: 20050215
  2. SYNTHROID [Suspect]
     Route: 048
     Dates: start: 20050216

REACTIONS (8)
  - ABDOMINAL DISTENSION [None]
  - ANGIONEUROTIC OEDEMA [None]
  - DYSPNOEA [None]
  - FLATULENCE [None]
  - INSOMNIA [None]
  - OEDEMA PERIPHERAL [None]
  - POLYURIA [None]
  - WEIGHT INCREASED [None]
